FAERS Safety Report 8261096-2 (Version None)
Quarter: 2012Q2

REPORT INFORMATION
  Report Type: 
  Country: None (occurrence: None)
  Receive Date: 20120405
  Receipt Date: 20120329
  Transmission Date: 20120825
  Serious: Yes (Other)
  Sender: FDA-Public Use
  Company Number: PHHY2012FR024090

PATIENT
  Sex: Female
  Weight: 59 kg

DRUGS (2)
  1. ZOLEDRONOC ACID [Suspect]
     Indication: OSTEOPOROSIS
     Dosage: 5 MG, UNK
     Route: 042
     Dates: start: 20110301
  2. VITAMIN D [Concomitant]

REACTIONS (3)
  - RECTAL HAEMORRHAGE [None]
  - GASTROINTESTINAL HAEMORRHAGE [None]
  - HAEMATOCHEZIA [None]
